APPROVED DRUG PRODUCT: ISOPROTERENOL HYDROCHLORIDE
Active Ingredient: ISOPROTERENOL HYDROCHLORIDE
Strength: 0.25%
Dosage Form/Route: SOLUTION;INHALATION
Application: A085994 | Product #001
Applicant: PARKE DAVIS DIV WARNER LAMBERT CO
Approved: Approved Prior to Jan 1, 1982 | RLD: No | RS: No | Type: DISCN